FAERS Safety Report 8400641 (Version 2)
Quarter: 2014Q1

REPORT INFORMATION
  Report Type: Spontaneous
  Country: US (occurrence: US)
  Receive Date: 20120210
  Receipt Date: 20140213
  Transmission Date: 20141002
  Serious: Yes (Hospitalization, Other)
  Sender: FDA-Public Use
  Company Number: US-BRISTOL-MYERS SQUIBB COMPANY-15950397

PATIENT
  Age: 68 Year
  Sex: Female
  Weight: 68.03 kg

DRUGS (4)
  1. ORENCIA [Suspect]
     Indication: RHEUMATOID ARTHRITIS
     Dates: start: 2009
  2. SYNTHROID [Concomitant]
     Indication: HYPOTHYROIDISM
  3. PRAVASTATINE [Concomitant]
     Indication: BLOOD CHOLESTEROL
  4. PLAQUENIL [Concomitant]

REACTIONS (3)
  - Skin cancer [Not Recovered/Not Resolved]
  - Lung neoplasm malignant [Recovered/Resolved]
  - Arthralgia [Unknown]
